FAERS Safety Report 5333662-5 (Version None)
Quarter: 2007Q2

REPORT INFORMATION
  Report Type: 
  Country: None (occurrence: None)
  Receive Date: 20070524
  Receipt Date: 20070521
  Transmission Date: 20071010
  Serious: Yes (Disabling, Other)
  Sender: FDA-Public Use
  Company Number: A0652165A

PATIENT
  Age: 57 Year
  Sex: Female

DRUGS (2)
  1. TYKERB [Suspect]
     Indication: BREAST CANCER
     Dosage: 750MG TWICE PER DAY
     Route: 048
     Dates: start: 20070514, end: 20070521
  2. NO CONCURRENT MEDICATION [Concomitant]

REACTIONS (5)
  - DIARRHOEA [None]
  - EYE PRURITUS [None]
  - ORAL MUCOSAL BLISTERING [None]
  - RASH [None]
  - RHINORRHOEA [None]
